FAERS Safety Report 11512009 (Version 6)
Quarter: 2016Q4

REPORT INFORMATION
  Report Type: Report from Study
  Country: JP (occurrence: JP)
  Receive Date: 20150916
  Receipt Date: 20161122
  Transmission Date: 20170206
  Serious: Yes (Death, Hospitalization, Other)
  Sender: FDA-Public Use
  Company Number: JP-BRISTOL-MYERS SQUIBB COMPANY-BMS-2015-028458

PATIENT
  Age: 85 Year
  Sex: Male
  Weight: 55 kg

DRUGS (6)
  1. PARIET [Concomitant]
     Active Substance: RABEPRAZOLE SODIUM
     Indication: PROPHYLAXIS
     Dosage: 10 MG, QD
     Route: 048
     Dates: end: 20151102
  2. GASMOTIN [Concomitant]
     Active Substance: MOSAPRIDE CITRATE
     Indication: PROPHYLAXIS
     Dosage: 15 MG, QD
     Route: 048
     Dates: end: 20151102
  3. EXCELASE [Concomitant]
     Active Substance: PANCRELIPASE
     Indication: PROPHYLAXIS
     Dosage: 1 DF, QD
     Route: 048
     Dates: end: 20151102
  4. AMLODIPINE [Concomitant]
     Active Substance: AMLODIPINE BESYLATE
     Indication: HYPERTENSION
     Dosage: 5 MG, QD
     Route: 048
     Dates: end: 20151102
  5. APIXABAN [Suspect]
     Active Substance: APIXABAN
     Indication: CEREBROVASCULAR ACCIDENT PROPHYLAXIS
     Dosage: 2.5 MG, BID
     Route: 048
     Dates: start: 20140810, end: 20151102
  6. MIRIPLATIN [Concomitant]
     Active Substance: MIRIPLATIN
     Indication: LUNG NEOPLASM MALIGNANT
     Dosage: UNK, QD
     Route: 048
     Dates: start: 20140908, end: 20140908

REACTIONS (11)
  - Cerebral infarction [Fatal]
  - Hepatic cancer recurrent [Recovered/Resolved with Sequelae]
  - Platelet count decreased [Recovered/Resolved]
  - Pneumothorax [Not Recovered/Not Resolved]
  - Aspiration pleural cavity [Unknown]
  - Lung neoplasm [Recovered/Resolved with Sequelae]
  - Radiation oesophagitis [Recovered/Resolved]
  - Hyperkalaemia [Recovered/Resolved]
  - Pleural effusion [Fatal]
  - Hepatocellular carcinoma [Recovered/Resolved]
  - Pneumonia [Fatal]

NARRATIVE: CASE EVENT DATE: 20140814
